FAERS Safety Report 6034384-8 (Version None)
Quarter: 2009Q1

REPORT INFORMATION
  Report Type: 
  Country: None (occurrence: None)
  Receive Date: 20090112
  Receipt Date: 20090109
  Transmission Date: 20090719
  Serious: Yes (Other)
  Sender: FDA-Public Use
  Company Number: A0762923A

PATIENT
  Age: 20 Year
  Sex: Female

DRUGS (2)
  1. NICORETTE [Suspect]
     Indication: SUICIDE ATTEMPT
     Dosage: 36GUM SINGLE DOSE
     Route: 002
     Dates: start: 20081026
  2. POLYPHARMACY [Suspect]
     Indication: DRUG USE FOR UNKNOWN INDICATION

REACTIONS (3)
  - ADVERSE EVENT [None]
  - INTENTIONAL OVERDOSE [None]
  - SUICIDE ATTEMPT [None]
